FAERS Safety Report 17534568 (Version 1)
Quarter: 2020Q1

REPORT INFORMATION
  Report Type: Spontaneous
  Country: GB (occurrence: GB)
  Receive Date: 20200312
  Receipt Date: 20200312
  Transmission Date: 20200409
  Serious: Yes (Other)
  Sender: FDA-Public Use
  Company Number: GB-LUNDBECK-DKLU3013867

PATIENT
  Age: 5 Year
  Sex: Female
  Weight: 17 kg

DRUGS (2)
  1. CARBAMAZEPINE. [Concomitant]
     Active Substance: CARBAMAZEPINE
     Indication: PRODUCT USED FOR UNKNOWN INDICATION
     Route: 065
  2. CLOBAZAM. [Suspect]
     Active Substance: CLOBAZAM
     Indication: EPILEPSY
     Route: 048
     Dates: start: 20191004, end: 20200116

REACTIONS (6)
  - Emotional distress [Unknown]
  - Frustration tolerance decreased [Recovering/Resolving]
  - Insomnia [Recovered/Resolved with Sequelae]
  - Drug ineffective [Unknown]
  - Psychomotor hyperactivity [Unknown]
  - Restlessness [Unknown]

NARRATIVE: CASE EVENT DATE: 20191004
